FAERS Safety Report 9522364 (Version 1)
Quarter: 2013Q1

REPORT INFORMATION
  Report Type: Spontaneous
  Country: US (occurrence: None)
  Receive Date: 20130305
  Receipt Date: 20130305
  Transmission Date: 20140127
  Serious: Yes (Hospitalization)
  Sender: FDA-Public Use
  Company Number: 163-21880-12031675

PATIENT
  Age: 63 Year
  Sex: Female

DRUGS (14)
  1. REVLIMID [Suspect]
     Indication: PLASMA CELL MYELOMA
     Dosage: 5 MG, QD X 28 DAYS, PO
     Route: 048
     Dates: start: 20091117
  2. GABAPENTIN (GABAPENTIN) [Concomitant]
  3. CELEBREX (CELECOXIB) [Concomitant]
  4. PLAVIX (CLOPIDOGREL [Concomitant]
  5. METFORMIN (METFORMIN) [Concomitant]
  6. SYNTHROID (LEVOTHYROXINE SODIUM) [Concomitant]
  7. ASPIRIN (ACETYLSALICYLIC ACID) [Concomitant]
  8. POTASSIUM CHLORIDE (POTASSIUM CHLORIDIE) [Concomitant]
  9. FISH OIL (FISH OIL) [Concomitant]
  10. CALCIUM (CALCIUM) [Concomitant]
  11. VITAMIN D (ERGOCALCIFEROL) [Concomitant]
  12. GLUCOPHAGE (METFORMIN HYDROCHLORIDE) [Concomitant]
  13. AZITHROMYCIN (AZITHROMYCIN) [Concomitant]
  14. CEFTRIAXONE (CEFTRIAXONE) [Concomitant]

REACTIONS (1)
  - Pyrexia [None]
